FAERS Safety Report 9910591 (Version 2)
Quarter: 2014Q1

REPORT INFORMATION
  Report Type: Spontaneous
  Country: US (occurrence: US)
  Receive Date: 20140219
  Receipt Date: 20140219
  Transmission Date: 20141002
  Serious: No
  Sender: FDA-Public Use
  Company Number: US-GILEAD-2012-0051892

PATIENT
  Sex: Female

DRUGS (1)
  1. LETAIRIS [Suspect]
     Indication: PRODUCT USED FOR UNKNOWN INDICATION
     Dosage: 5 MG, UNK
     Route: 048
     Dates: start: 20120222

REACTIONS (9)
  - Flatulence [Unknown]
  - Nasal dryness [Unknown]
  - Fatigue [Unknown]
  - Decreased appetite [Unknown]
  - Infection [Unknown]
  - Abdominal distension [Unknown]
  - Nasal congestion [Unknown]
  - Oedema [Unknown]
  - Local swelling [Unknown]
